FAERS Safety Report 12739864 (Version 1)
Quarter: 2016Q3

REPORT INFORMATION
  Report Type: Spontaneous
  Country: US (occurrence: US)
  Receive Date: 20160913
  Receipt Date: 20160913
  Transmission Date: 20161109
  Serious: No
  Sender: FDA-Public Use
  Company Number: ALCN2016US006291

PATIENT
  Age: 81 Year
  Sex: Female

DRUGS (1)
  1. SIMBRINZA [Suspect]
     Active Substance: BRIMONIDINE TARTRATE\BRINZOLAMIDE
     Indication: GLAUCOMA
     Dosage: 1 GTT, TID
     Route: 047
     Dates: start: 201607

REACTIONS (4)
  - Decreased appetite [Unknown]
  - Dyspnoea [Unknown]
  - Nasal dryness [Unknown]
  - Weight decreased [Unknown]

NARRATIVE: CASE EVENT DATE: 201608
